FAERS Safety Report 8822756 (Version 4)
Quarter: 2012Q4

REPORT INFORMATION
  Report Type: 
  Country: US (occurrence: US)
  Receive Date: 20121003
  Receipt Date: 20121112
  Transmission Date: 20130627
  Serious: No
  Sender: FDA-Public Use
  Company Number: US-VERTEX PHARMACEUTICAL INC.-2012-020359

PATIENT
  Age: 52 Year
  Sex: Female
  Weight: 81 kg

DRUGS (5)
  1. INCIVEK [Suspect]
     Indication: HEPATITIS C
     Dosage: 750 mg, tid
     Route: 048
     Dates: start: 20120824
  2. PEGASYS [Suspect]
     Indication: HEPATITIS C
     Dosage: 180 ?g, qw
     Route: 058
     Dates: start: 20120824
  3. RIBAVIRIN [Suspect]
     Indication: HEPATITIS C
     Dosage: 6 DF, qd, 4tabs in AM,2tabs in PM
     Route: 048
     Dates: start: 20120824, end: 201209
  4. RIBAVIRIN [Suspect]
     Dosage: 3 DF, qd, 2tabs in AM, 1 tab in PM
     Route: 048
     Dates: start: 20120921
  5. METFORMIN [Concomitant]
     Indication: DIABETES MELLITUS
     Dosage: 1000 mg, bid

REACTIONS (9)
  - Pelvic pain [Unknown]
  - Back pain [Unknown]
  - Somnolence [Unknown]
  - Acne [Not Recovered/Not Resolved]
  - Fatigue [Unknown]
  - Rash papular [Recovered/Resolved]
  - Platelet count decreased [Unknown]
  - Pruritus [Not Recovered/Not Resolved]
  - Dysgeusia [Not Recovered/Not Resolved]
